FAERS Safety Report 6887801-5 (Version None)
Quarter: 2010Q3

REPORT INFORMATION
  Report Type: 
  Country: None (occurrence: None)
  Receive Date: 20100730
  Receipt Date: 20100717
  Transmission Date: 20110219
  Serious: Yes (Hospitalization)
  Sender: FDA-Public Use
  Company Number: PHFR2010GB01357

PATIENT
  Sex: Female

DRUGS (1)
  1. CLOZARIL [Suspect]
     Indication: SCHIZOPHRENIA
     Dosage: 275 MG/DAY
     Route: 048
     Dates: start: 20060707

REACTIONS (2)
  - BODY TEMPERATURE INCREASED [None]
  - OROPHARYNGEAL PAIN [None]
